FAERS Safety Report 9852461 (Version 1)
Quarter: 2014Q1

REPORT INFORMATION
  Report Type: Spontaneous
  Country: US (occurrence: None)
  Receive Date: 20140128
  Receipt Date: 20140128
  Transmission Date: 20141002
  Serious: Yes (Disabling)
  Sender: FDA-Public Use
  Company Number: None

PATIENT
  Age: 62 Year
  Sex: Female
  Weight: 67.13 kg

DRUGS (1)
  1. PREDNISOLONE [Suspect]
     Indication: CATARACT OPERATION
     Dosage: SURGERY EYE/4 TIMES PER DAY DAILY INTO THE EYE
     Dates: start: 20131003, end: 20131215

REACTIONS (2)
  - Dizziness [None]
  - Dyspnoea [None]
